FAERS Safety Report 24094464 (Version 1)
Quarter: 2024Q3

REPORT INFORMATION
  Report Type: Spontaneous
  Country: FR (occurrence: FR)
  Receive Date: 20240716
  Receipt Date: 20240716
  Transmission Date: 20241016
  Serious: Yes (Other)
  Sender: IDORSIA PHARMACEUTICALS
  Company Number: None

PATIENT
  Age: 74 Year
  Sex: Male

DRUGS (6)
  1. QUVIVIQ [Suspect]
     Active Substance: DARIDOREXANT
     Indication: Insomnia
     Dosage: 0-0-1
     Route: 048
     Dates: start: 20240422, end: 20240513
  2. DULOXETINE HYDROCHLORIDE [Concomitant]
     Active Substance: DULOXETINE HYDROCHLORIDE
     Indication: Depression
     Dosage: 1-0-0
     Route: 048
     Dates: start: 2024
  3. DULOXETINE HYDROCHLORIDE [Concomitant]
     Active Substance: DULOXETINE HYDROCHLORIDE
     Dosage: 1-0-0
     Route: 048
     Dates: start: 2024
  4. MELATONIN [Concomitant]
     Active Substance: MELATONIN
     Indication: Sleep disorder
     Dosage: 0-0-0-1 IF OCCASIONALLY NEEDED
     Route: 048
     Dates: start: 2024
  5. ZOPICLONE [Concomitant]
     Active Substance: ZOPICLONE
     Indication: Sleep disorder
     Dosage: 1 IF OCCASIONALLY NEEDED
     Route: 048
     Dates: start: 2024
  6. VALPROMIDE [Concomitant]
     Active Substance: VALPROMIDE
     Indication: Affective disorder
     Dosage: 2-0-2
     Route: 048
     Dates: start: 2024

REACTIONS (1)
  - Depressive symptom [Recovering/Resolving]

NARRATIVE: CASE EVENT DATE: 20240429
